FAERS Safety Report 21488156 (Version 1)
Quarter: 2022Q4

REPORT INFORMATION
  Report Type: Spontaneous
  Country: US (occurrence: None)
  Receive Date: 20221020
  Receipt Date: 20221020
  Transmission Date: 20230113
  Serious: Yes (Death)
  Sender: FDA-Public Use
  Company Number: None

PATIENT
  Age: 49 Year
  Sex: Female
  Weight: 48.1 kg

DRUGS (23)
  1. PACLITAXEL PROTEIN-BOUND PARTICLES FOR INJECTABLE SUSPENSION (ALBUMIN- [Suspect]
     Active Substance: PACLITAXEL
     Dates: end: 20221017
  2. ACETAMINOPHEN [Concomitant]
     Active Substance: ACETAMINOPHEN
  3. DEXTROAMPHET SACCHARAT, AMPHET ASPARTATE, DEXTROAMPHET SULFATE AND AMP [Concomitant]
     Active Substance: AMPHETAMINE ASPARTATE\AMPHETAMINE SULFATE\DEXTROAMPHETAMINE SACCHARATE\DEXTROAMPHETAMINE SULFATE
  4. FENTANYL TRANSDERMAL SYSTEM [Concomitant]
     Active Substance: FENTANYL
  5. FILGRASTIM-SNDZ [Concomitant]
     Active Substance: FILGRASTIM-SNDZ
  6. HYDROMORPHONE [Concomitant]
     Active Substance: HYDROMORPHONE
  7. OLANZAPINE [Concomitant]
     Active Substance: OLANZAPINE
  8. ONDANSETRON [Concomitant]
     Active Substance: ONDANSETRON
  9. PEGFILGRASTIM-JMDB [Concomitant]
     Active Substance: PEGFILGRASTIM-JMDB
  10. Polyethylene Glycol packet [Concomitant]
  11. PREDNISONE [Concomitant]
     Active Substance: PREDNISONE
  12. PROCHLORPERAZINE [Concomitant]
     Active Substance: PROCHLORPERAZINE
  13. Calcium carbonate-vitamin D3 [Concomitant]
  14. LEVOTHYROXINE [Concomitant]
     Active Substance: LEVOTHYROXINE
  15. Lidocaine-prilocaine topical cream [Concomitant]
  16. MAGNESIUM HYDROXIDE [Concomitant]
     Active Substance: MAGNESIUM HYDROXIDE
  17. MELATONIN [Concomitant]
     Active Substance: MELATONIN
  18. Multivitamin with folic acid [Concomitant]
  19. NALOXEGOL [Concomitant]
     Active Substance: NALOXEGOL
  20. NALOXONE [Concomitant]
     Active Substance: NALOXONE
  21. SCOPOLAMINE [Concomitant]
     Active Substance: SCOPOLAMINE
  22. SENNA [Concomitant]
     Active Substance: SENNA LEAF\SENNOSIDES\SENNOSIDES A AND B
  23. TRAZODONE [Concomitant]
     Active Substance: TRAZODONE HYDROCHLORIDE

REACTIONS (2)
  - Disease progression [None]
  - Death [None]

NARRATIVE: CASE EVENT DATE: 20221019
